FAERS Safety Report 25343658 (Version 1)
Quarter: 2025Q2

REPORT INFORMATION
  Report Type: Spontaneous
  Country: US (occurrence: None)
  Receive Date: 20250521
  Receipt Date: 20250521
  Transmission Date: 20250716
  Serious: No
  Sender: FDA-CTU
  Company Number: None

PATIENT
  Age: 62 Year
  Sex: Female
  Weight: 60.75 kg

DRUGS (5)
  1. CHLORTHALIDONE [Suspect]
     Active Substance: CHLORTHALIDONE
     Indication: Peripheral vascular disorder
     Dosage: OTHER QUANTITY : 1 TABLET(S);?FREQUENCY : DAILY;?
     Route: 048
     Dates: start: 20250507, end: 20250519
  2. LOSARTAN [Concomitant]
     Active Substance: LOSARTAN
  3. METOPROLOL SUCCINATE [Concomitant]
     Active Substance: METOPROLOL SUCCINATE
  4. stnbicort [Concomitant]
  5. ALBUTEROL [Concomitant]
     Active Substance: ALBUTEROL

REACTIONS (9)
  - Muscle spasms [None]
  - Cardiovascular disorder [None]
  - Dyspnoea [None]
  - Hyperhidrosis [None]
  - Feeling abnormal [None]
  - Syncope [None]
  - Pain [None]
  - Balance disorder [None]
  - Skin discolouration [None]

NARRATIVE: CASE EVENT DATE: 20250510
